FAERS Safety Report 17457726 (Version 5)
Quarter: 2022Q4

REPORT INFORMATION
  Report Type: Report from Study
  Country: CA (occurrence: CA)
  Receive Date: 20200225
  Receipt Date: 20221018
  Transmission Date: 20230112
  Serious: Yes (Hospitalization)
  Sender: FDA-Public Use
  Company Number: None

PATIENT
  Sex: Female

DRUGS (1)
  1. ERELZI [Suspect]
     Active Substance: ETANERCEPT-SZZS
     Indication: Rheumatoid arthritis
     Dosage: 50 MG, QW (FORMULATION: PRE FILLED PEN)
     Route: 058
     Dates: start: 20190826

REACTIONS (3)
  - Peripheral vascular disorder [Unknown]
  - Rash [Unknown]
  - Injection site pain [Unknown]
